FAERS Safety Report 16350228 (Version 2)
Quarter: 2020Q3

REPORT INFORMATION
  Report Type: Report from Study
  Country: IL (occurrence: IL)
  Receive Date: 20190523
  Receipt Date: 20200728
  Transmission Date: 20201102
  Serious: Yes (Death, Hospitalization, Other)
  Sender: FDA-Public Use
  Company Number: IL-BRISTOL-MYERS SQUIBB COMPANY-BMS-2019-050731

PATIENT
  Age: 55 Year
  Sex: Male
  Weight: 90 kg

DRUGS (5)
  1. APIXABAN [Suspect]
     Active Substance: APIXABAN
     Indication: PULMONARY EMBOLISM
  2. JARDIANCE [Concomitant]
     Active Substance: EMPAGLIFLOZIN
     Indication: PROPHYLAXIS
     Dosage: 12.5 MILLIGRAM, BID
     Route: 048
     Dates: start: 20180611
  3. ACTOS [Concomitant]
     Active Substance: PIOGLITAZONE HYDROCHLORIDE
     Indication: PROPHYLAXIS
     Dosage: 30 MILLIGRAM, QD
     Route: 048
     Dates: start: 20181213
  4. CRESTOR [Concomitant]
     Active Substance: ROSUVASTATIN CALCIUM
     Indication: PROPHYLAXIS
     Dosage: 20 MILLIGRAM, QD
     Route: 048
     Dates: start: 20160624
  5. APIXABAN [Suspect]
     Active Substance: APIXABAN
     Indication: DEEP VEIN THROMBOSIS
     Dosage: 20 MILLIGRAM
     Route: 048
     Dates: start: 20190303, end: 20190312

REACTIONS (2)
  - Pneumonia [Fatal]
  - Malignant neoplasm progression [Fatal]

NARRATIVE: CASE EVENT DATE: 20190309
